FAERS Safety Report 22097362 (Version 2)
Quarter: 2023Q1

REPORT INFORMATION
  Report Type: Spontaneous
  Country: JP (occurrence: JP)
  Receive Date: 20230315
  Receipt Date: 20230321
  Transmission Date: 20230418
  Serious: Yes (Death, Life-Threatening, Other)
  Sender: FDA-Public Use
  Company Number: JP-ASTELLAS-2023JP003205

PATIENT
  Age: 9 Decade
  Sex: Female

DRUGS (5)
  1. XOSPATA [Suspect]
     Active Substance: GILTERITINIB
     Indication: Acute myeloid leukaemia refractory
     Route: 048
     Dates: start: 20230208, end: 20230305
  2. VENCLEXTA [Concomitant]
     Active Substance: VENETOCLAX
     Indication: Myelodysplastic syndrome
     Dosage: UNK UNK, UNKNOWN FREQ.
     Route: 065
  3. VENCLEXTA [Concomitant]
     Active Substance: VENETOCLAX
     Indication: Acute myeloid leukaemia
  4. AZACITIDINE [Concomitant]
     Active Substance: AZACITIDINE
     Indication: Myelodysplastic syndrome
     Dosage: UNK UNK, UNKNOWN FREQ.
     Route: 065
  5. AZACITIDINE [Concomitant]
     Active Substance: AZACITIDINE
     Indication: Acute myeloid leukaemia

REACTIONS (2)
  - Sepsis [Fatal]
  - Myelosuppression [Not Recovered/Not Resolved]

NARRATIVE: CASE EVENT DATE: 20230306
